FAERS Safety Report 4398594-8 (Version None)
Quarter: 2004Q3

REPORT INFORMATION
  Report Type: 
  Country: None (occurrence: None)
  Receive Date: 20040712
  Receipt Date: 20040625
  Transmission Date: 20050211
  Serious: Yes (Hospitalization)
  Sender: FDA-Public Use
  Company Number: JP-JNJFOC-20040604343

PATIENT
  Age: 76 Year
  Sex: Male

DRUGS (5)
  1. ITRACONAZOLE [Suspect]
     Indication: ONYCHOMYCOSIS
     Dosage: 200 MG, 1 IN 1 DAY, ORAL
     Route: 048
     Dates: start: 20040304, end: 20040516
  2. TICLOPIDINE HCL [Concomitant]
  3. NILVADIPINE [Concomitant]
  4. TEPRENONE [Concomitant]
  5. ASPIRIN [Concomitant]

REACTIONS (5)
  - ERYTHEMA MULTIFORME [None]
  - FATIGUE [None]
  - HERPES ZOSTER [None]
  - IDIOPATHIC THROMBOCYTOPENIC PURPURA [None]
  - THROMBOCYTOPENIA [None]
